FAERS Safety Report 7718047-6 (Version None)
Quarter: 2011Q3

REPORT INFORMATION
  Report Type: 
  Country: None (occurrence: None)
  Receive Date: 20110830
  Receipt Date: 20110610
  Transmission Date: 20111222
  Serious: Yes (Other)
  Sender: FDA-Public Use
  Company Number: US-AMGEN-USASP2011019404

PATIENT
  Age: 48 Year
  Sex: Female

DRUGS (2)
  1. NPLATE [Suspect]
     Indication: IDIOPATHIC THROMBOCYTOPENIC PURPURA
     Dosage: 150 A?G, UNK
     Dates: start: 20081104, end: 20091104
  2. CORTICOSTEROIDS [Concomitant]
     Dosage: UNK
     Dates: start: 19910101

REACTIONS (3)
  - ACTIVITIES OF DAILY LIVING IMPAIRED [None]
  - DRUG INEFFECTIVE [None]
  - ADVERSE DRUG REACTION [None]
